FAERS Safety Report 5893732-X (Version None)
Quarter: 2008Q3

REPORT INFORMATION
  Report Type: 
  Country: None (occurrence: None)
  Receive Date: 20080918
  Receipt Date: 20080905
  Transmission Date: 20090109
  Serious: Yes (Life-Threatening)
  Sender: FDA-Public Use
  Company Number: 004345

PATIENT
  Age: 51 Year
  Sex: Female

DRUGS (6)
  1. BUSULFEX [Suspect]
     Indication: STEM CELL TRANSPLANT
     Dosage: 24 ML, INTRAVENOUS
     Route: 042
     Dates: start: 20061117, end: 20061120
  2. CYCLOPHOSPHAMIDE [Concomitant]
  3. VALPROATE SODIUM [Concomitant]
  4. FILGRASTIM (FILGRASTIM) [Concomitant]
  5. METHOTREXATE [Concomitant]
  6. TACROLIMUS [Concomitant]

REACTIONS (8)
  - ACUTE GRAFT VERSUS HOST DISEASE [None]
  - ADULT T-CELL LYMPHOMA/LEUKAEMIA RECURRENT [None]
  - ANOREXIA [None]
  - BONE MARROW TRANSPLANT [None]
  - CYTOMEGALOVIRUS ENTEROCOLITIS [None]
  - MALAISE [None]
  - STOMATITIS [None]
  - VOMITING [None]
